FAERS Safety Report 12969044 (Version 2)
Quarter: 2017Q1

REPORT INFORMATION
  Report Type: Spontaneous
  Country: JP (occurrence: JP)
  Receive Date: 20161123
  Receipt Date: 20170120
  Transmission Date: 20170428
  Serious: Yes (Death, Life-Threatening, Other)
  Sender: FDA-Public Use
  Company Number: JP-PFIZER INC-2016542245

PATIENT
  Age: 4 Year
  Sex: Female
  Weight: 15 kg

DRUGS (10)
  1. FIRSTCIN [Concomitant]
     Active Substance: CEFOZOPRAN HYDROCHLORIDE
     Indication: PNEUMONIA
     Dosage: 2.8 G, DAILY
     Route: 041
     Dates: start: 20091016, end: 20091021
  2. ZOSYN [Suspect]
     Active Substance: PIPERACILLIN SODIUM\TAZOBACTAM SODIUM
     Indication: PNEUMONIA
     Dosage: 1.5 G, 2X/DAY
     Route: 041
     Dates: start: 20091021, end: 20091102
  3. BFLUID [Concomitant]
     Active Substance: AMINO ACIDS\DEXTROSE\ELECTROLYTES NOS\VITAMINS
     Indication: MALNUTRITION
     Dosage: 240 ML, DAILY
     Route: 041
     Dates: start: 20091026
  4. MYSTAN [Concomitant]
     Active Substance: CLOBAZAM
     Indication: EPILEPSY
     Dosage: 6 MG, DAILY
     Route: 048
     Dates: start: 20090818
  5. SOLDEM 3A [Concomitant]
     Active Substance: CARBOHYDRATES\POTASSIUM CHLORIDE\SODIUM CHLORIDE\SODIUM LACTATE
     Indication: PNEUMONIA
     Dosage: 240 ML, DAILY
     Route: 041
     Dates: start: 20091015
  6. EXCEGRAN [Concomitant]
     Active Substance: ZONISAMIDE
     Indication: EPILEPSY
     Dosage: 70 MG, DAILY
     Route: 048
     Dates: start: 20090818
  7. SAXIZON [Concomitant]
     Active Substance: HYDROCORTISONE SODIUM SUCCINATE
     Indication: CHRONIC RESPIRATORY FAILURE
     Dosage: 100 MG, DAILY
     Route: 041
     Dates: start: 20091028
  8. HABEKACIN /01069401/ [Suspect]
     Active Substance: ARBEKACIN SULFATE
     Indication: PNEUMONIA
     Dosage: 100 MG, DAILY
     Route: 041
     Dates: start: 20091021, end: 20091030
  9. SULBACILLIN [Concomitant]
     Active Substance: AMPICILLIN SODIUM\SULBACTAM SODIUM
     Indication: PNEUMONIA
     Dosage: 0.9 G, DAILY
     Route: 041
     Dates: start: 20091102
  10. NEOPHYLLIN /00003701/ [Concomitant]
     Active Substance: AMINOPHYLLINE
     Indication: CHRONIC RESPIRATORY FAILURE
     Dosage: 5 ML, DAILY
     Route: 041
     Dates: start: 20091016

REACTIONS (1)
  - Acute kidney injury [Recovered/Resolved]

NARRATIVE: CASE EVENT DATE: 20091030
